FAERS Safety Report 20394464 (Version 1)
Quarter: 2022Q1

REPORT INFORMATION
  Report Type: Report from Study
  Country: US (occurrence: US)
  Receive Date: 20220129
  Receipt Date: 20220129
  Transmission Date: 20220423
  Serious: Yes (Hospitalization, Other)
  Sender: FDA-Public Use
  Company Number: US-AMGEN-USASP2022011710

PATIENT
  Age: 77 Year
  Sex: Male
  Weight: 81.8 kg

DRUGS (3)
  1. BLINATUMOMAB [Suspect]
     Active Substance: BLINATUMOMAB
     Indication: B precursor type acute leukaemia
     Dosage: UNK UNK, CYCLICAL/ TOTAL DOSE: 280 MCG
     Route: 042
     Dates: start: 20201228
  2. INOTUZUMAB OZOGAMICIN [Suspect]
     Active Substance: INOTUZUMAB OZOGAMICIN
     Indication: B precursor type acute leukaemia
     Dosage: UNK UNK, CYCLICAL
     Route: 042
     Dates: start: 20201027, end: 20201204
  3. METHOTREXATE SODIUM [Suspect]
     Active Substance: METHOTREXATE SODIUM
     Indication: B precursor type acute leukaemia
     Dosage: UNK UNK, CYCLICAL
     Route: 037
     Dates: start: 20201120

REACTIONS (4)
  - Gait disturbance [Recovered/Resolved]
  - Neurotoxicity [Recovered/Resolved]
  - Confusional state [Recovered/Resolved]
  - Tremor [Not Recovered/Not Resolved]

NARRATIVE: CASE EVENT DATE: 20210331
